FAERS Safety Report 6211084-2 (Version None)
Quarter: 2009Q2

REPORT INFORMATION
  Report Type: 
  Country: None (occurrence: None)
  Receive Date: 20090602
  Receipt Date: 20090527
  Transmission Date: 20091009
  Serious: Yes (Other)
  Sender: FDA-Public Use
  Company Number: US-BRISTOL-MYERS SQUIBB COMPANY-14449334

PATIENT
  Age: 65 Year
  Sex: Female
  Weight: 56 kg

DRUGS (7)
  1. SPRYCEL [Suspect]
     Indication: OVARIAN EPITHELIAL CANCER
     Dosage: START DATE OF FIRST COURSE:09OCT08.ASSOCIATED:12DEC08
     Route: 048
     Dates: start: 20081009, end: 20081216
  2. DIOVAN [Concomitant]
  3. LASIX [Concomitant]
  4. POTASSIUM CHLORIDE [Concomitant]
  5. PROCRIT [Concomitant]
  6. SPIRONOLACTONE [Concomitant]
  7. TOPROL-XL [Concomitant]

REACTIONS (2)
  - CEREBRAL HAEMORRHAGE [None]
  - CEREBRAL ISCHAEMIA [None]
